FAERS Safety Report 7643082-6 (Version None)
Quarter: 2011Q3

REPORT INFORMATION
  Report Type: 
  Country: None (occurrence: None)
  Receive Date: 20110728
  Receipt Date: 20110719
  Transmission Date: 20111222
  Serious: Yes (Hospitalization, Other)
  Sender: FDA-Public Use
  Company Number: US-ASTRAZENECA-2011SE28741

PATIENT
  Age: 76 Year
  Sex: Female

DRUGS (2)
  1. PLAVIX [Concomitant]
  2. NEXIUM [Suspect]
     Route: 048

REACTIONS (17)
  - PERIPHERAL ISCHAEMIA [None]
  - ARTERIAL STENT INSERTION [None]
  - THROMBECTOMY [None]
  - LIMB OPERATION [None]
  - HIATUS HERNIA [None]
  - GASTROOESOPHAGEAL REFLUX DISEASE [None]
  - HERNIA HIATUS REPAIR [None]
  - THROMBOLYSIS [None]
  - PERIPHERAL ARTERIAL OCCLUSIVE DISEASE [None]
  - PERIPHERAL ARTERY ANGIOPLASTY [None]
  - OESOPHAGEAL CARCINOMA [None]
  - DEVICE OCCLUSION [None]
  - ANGIOGRAM PERIPHERAL [None]
  - ADHESIOLYSIS [None]
  - THROMBOSIS [None]
  - BARRETT'S OESOPHAGUS [None]
  - OESOPHAGOGASTRIC FUNDOPLASTY [None]
